FAERS Safety Report 8160930-4 (Version None)
Quarter: 2012Q1

REPORT INFORMATION
  Report Type: 
  Country: None (occurrence: None)
  Receive Date: 20120223
  Receipt Date: 20120217
  Transmission Date: 20120608
  Serious: Yes (Hospitalization, Other)
  Sender: FDA-Public Use
  Company Number: US-MERCK-1109USA03243

PATIENT
  Age: 67 Year
  Sex: Female
  Weight: 80 kg

DRUGS (9)
  1. NAPROX [Concomitant]
     Indication: HYPERTENSION
     Route: 065
     Dates: start: 20000101
  2. FOSAMAX PLUS D [Suspect]
     Indication: OSTEOPOROSIS
     Route: 048
     Dates: start: 20060401, end: 20091001
  3. VITAMINS (UNSPECIFIED) [Concomitant]
     Route: 065
     Dates: start: 20060101
  4. LIPITOR [Concomitant]
     Indication: BLOOD CHOLESTEROL INCREASED
     Route: 065
     Dates: start: 20000101
  5. DIOVAN [Concomitant]
     Indication: HYPERTENSION
     Route: 065
     Dates: start: 20010101
  6. ASPIRIN [Concomitant]
     Indication: ARTHRITIS
     Route: 065
     Dates: start: 20000101
  7. OMEPRAZOLE [Concomitant]
     Route: 065
     Dates: start: 20060101
  8. FOSAMAX [Suspect]
     Indication: OSTEOPOROSIS
     Route: 048
     Dates: start: 20040101, end: 20080101
  9. TENORMIN [Concomitant]
     Indication: HYPERTENSION
     Route: 065
     Dates: start: 20010101

REACTIONS (16)
  - FEMUR FRACTURE [None]
  - JOINT EFFUSION [None]
  - UNEVALUABLE EVENT [None]
  - CARPAL TUNNEL SYNDROME [None]
  - DISLOCATION OF VERTEBRA [None]
  - HYPERLIPIDAEMIA [None]
  - TOOTH FRACTURE [None]
  - SPONDYLOLISTHESIS [None]
  - SCOLIOSIS [None]
  - OSTEOARTHRITIS [None]
  - MENISCUS LESION [None]
  - PAIN IN EXTREMITY [None]
  - SPINAL COMPRESSION FRACTURE [None]
  - TOOTH DISORDER [None]
  - INTERVERTEBRAL DISC DEGENERATION [None]
  - INTERVERTEBRAL DISC PROTRUSION [None]
